FAERS Safety Report 25426384 (Version 1)
Quarter: 2025Q2

REPORT INFORMATION
  Report Type: Spontaneous
  Country: GB (occurrence: GB)
  Receive Date: 20250612
  Receipt Date: 20250612
  Transmission Date: 20250716
  Serious: Yes (Hospitalization)
  Sender: REGENERON
  Company Number: GB-SA-2025SA161755

PATIENT
  Age: 72 Year
  Sex: Female

DRUGS (1)
  1. PRALUENT [Suspect]
     Active Substance: ALIROCUMAB
     Indication: Type IIa hyperlipidaemia
     Route: 058

REACTIONS (2)
  - Arthritis [Unknown]
  - Inappropriate schedule of product administration [Unknown]
